FAERS Safety Report 5960555-2 (Version None)
Quarter: 2008Q4

REPORT INFORMATION
  Report Type: 
  Country: None (occurrence: None)
  Receive Date: 20081120
  Receipt Date: 20081113
  Transmission Date: 20090506
  Serious: Yes (Other)
  Sender: FDA-Public Use
  Company Number: CH-PFIZER INC-2008091249

PATIENT
  Age: 57 Year
  Sex: Female
  Weight: 50 kg

DRUGS (6)
  1. SORTIS [Suspect]
     Indication: MYOCARDIAL INFARCTION
     Route: 048
     Dates: start: 20080419, end: 20080620
  2. ASPIRIN [Concomitant]
     Dosage: DAILY DOSE:100MG
     Route: 048
     Dates: start: 20080419
  3. PLAVIX [Concomitant]
     Dosage: DAILY DOSE:75MG
     Route: 048
     Dates: start: 20080419
  4. BISOPROLOL FUMARATE [Concomitant]
     Dosage: DAILY DOSE:1.25MG
     Route: 048
     Dates: start: 20080419
  5. TRIATEC [Concomitant]
  6. ALL OTHER THERAPEUTIC PRODUCTS [Concomitant]
     Dosage: FREQ:TAKEN IF NEEDED
     Route: 048
     Dates: start: 20080623

REACTIONS (3)
  - BLOOD CREATINE PHOSPHOKINASE INCREASED [None]
  - PAIN [None]
  - PARAESTHESIA [None]
